FAERS Safety Report 6192558-X (Version None)
Quarter: 2009Q2

REPORT INFORMATION
  Report Type: 
  Country: None (occurrence: None)
  Receive Date: 20090518
  Receipt Date: 20090507
  Transmission Date: 20091009
  Serious: Yes (Hospitalization)
  Sender: FDA-Public Use
  Company Number: GB-AMGEN-US346565

PATIENT
  Age: 6 Year
  Sex: Female

DRUGS (11)
  1. ENBREL [Suspect]
     Indication: POLYARTHRITIS
     Dosage: UNKNOWN
     Route: 065
  2. METHOTREXATE [Suspect]
     Indication: POLYARTHRITIS
     Route: 058
     Dates: start: 20061004, end: 20080818
  3. METHOTREXATE [Suspect]
     Route: 065
  4. CLOBAZAM [Concomitant]
     Route: 048
     Dates: start: 20050901
  5. FOLIC ACID [Concomitant]
     Route: 048
     Dates: start: 20051001
  6. SYTRON [Concomitant]
     Route: 065
  7. METHYLPREDNISOLONE [Concomitant]
     Dosage: UNKNOWN
     Route: 042
     Dates: start: 20051008
  8. NAPROXEN [Concomitant]
     Route: 048
     Dates: start: 20051001
  9. PREDNISOLONE [Concomitant]
     Route: 048
     Dates: start: 20051001
  10. RANITIDINE [Concomitant]
     Route: 048
  11. LEVETIRACETAM [Concomitant]
     Route: 048
     Dates: start: 20061201

REACTIONS (2)
  - ARTHRITIS [None]
  - CONDITION AGGRAVATED [None]
